FAERS Safety Report 20156336 (Version 1)
Quarter: 2021Q4

REPORT INFORMATION
  Report Type: Spontaneous
  Country: IN (occurrence: IN)
  Receive Date: 20211207
  Receipt Date: 20211207
  Transmission Date: 20220304
  Serious: Yes (Other)
  Sender: FDA-Public Use
  Company Number: IN-PFIZER INC-2020476342

PATIENT
  Age: 61 Year
  Sex: Male
  Weight: 51.1 kg

DRUGS (11)
  1. DACOMITINIB [Suspect]
     Active Substance: DACOMITINIB
     Dosage: 30 MG, DAILY
     Route: 048
     Dates: start: 20201127
  2. DACOMITINIB [Suspect]
     Active Substance: DACOMITINIB
     Dosage: 30 MG, 1X/DAY
     Route: 048
     Dates: start: 20210108
  3. DACOMITINIB [Suspect]
     Active Substance: DACOMITINIB
     Dosage: 30 MG, 1X/DAY
     Route: 048
     Dates: start: 20210226
  4. DACOMITINIB [Suspect]
     Active Substance: DACOMITINIB
     Dosage: 15 MG, 1X/DAY
     Route: 048
     Dates: start: 20210618
  5. CLINDAMYCIN [Concomitant]
     Active Substance: CLINDAMYCIN
     Dosage: UNK
  6. CREMAFFIN [Concomitant]
     Dosage: 2TSP, AT BED TIMES (HS)
  7. GRILINCTUS [CHLORPHENAMINE MALEATE;DEXTROMETHORPHAN HYDROBROMIDE;PHENY [Concomitant]
     Dosage: 2 TSP 1-1-1
  8. LOPERAMIDE [Concomitant]
     Active Substance: LOPERAMIDE
     Dosage: 2 DF,START IF LOOSE STOOLS } 4 TIMES
  9. METOCLOPRAMIDE HYDROCHLORIDE [Concomitant]
     Active Substance: METOCLOPRAMIDE HYDROCHLORIDE
     Dosage: 1 TAB SOS
  10. HAFOOS UREA [Concomitant]
     Dosage: UNK
  11. RANTAC D PLUS [Concomitant]
     Indication: Dyspepsia
     Dosage: 300 MG, DAILY

REACTIONS (15)
  - Cerebral atrophy [Unknown]
  - Diarrhoea [Unknown]
  - Mucosal inflammation [Unknown]
  - Paronychia [Unknown]
  - Dyspepsia [Unknown]
  - Rash [Recovering/Resolving]
  - Blood pressure systolic increased [Unknown]
  - Weight decreased [Unknown]
  - Pain [Unknown]
  - Cough [Unknown]
  - Respiratory rate decreased [Unknown]
  - Abdominal pain [Unknown]
  - Dizziness [Unknown]
  - Haemangioma [Unknown]
  - White matter lesion [Unknown]

NARRATIVE: CASE EVENT DATE: 20210627
